FAERS Safety Report 6867370-6 (Version None)
Quarter: 2010Q2

REPORT INFORMATION
  Report Type: 
  Country: None (occurrence: None)
  Receive Date: 20100528
  Receipt Date: 20100503
  Transmission Date: 20101027
  Serious: No
  Sender: FDA-Public Use
  Company Number: 2010019119

PATIENT
  Sex: Female
  Weight: 48.5 kg

DRUGS (6)
  1. TOVIAZ [Suspect]
     Indication: POLLAKIURIA
     Dosage: 4 MG, 1X/DAY, ORAL
     Route: 048
  2. ACTONEL [Concomitant]
  3. LOTREL [Concomitant]
  4. METOPROLOL SUCCINATE [Concomitant]
  5. SIMVASTATIN [Concomitant]
  6. RANITIDINE [Concomitant]

REACTIONS (2)
  - DIZZINESS [None]
  - FALL [None]
